FAERS Safety Report 5306882-3 (Version None)
Quarter: 2007Q2

REPORT INFORMATION
  Report Type: 
  Country: None (occurrence: None)
  Receive Date: 20070425
  Receipt Date: 20070412
  Transmission Date: 20071010
  Serious: Yes (Hospitalization, Other)
  Sender: FDA-Public Use
  Company Number: PHBS2007DE05376

PATIENT
  Age: 41 Year
  Sex: Female

DRUGS (9)
  1. TEGRETOL [Suspect]
     Dosage: 400 MG/DAY
     Route: 065
  2. TEGRETOL [Suspect]
     Dosage: 400 MG/DAY
     Route: 065
  3. TEGRETOL [Suspect]
     Dosage: 800 MG/DAY
     Route: 065
  4. L-POLAMIDON [Concomitant]
     Dosage: 75 MG/DAY
     Route: 065
  5. DIAZEPAM [Concomitant]
     Dosage: 20 MG/DAY
  6. GABAPENTIN [Concomitant]
     Dosage: 900 MG/DAY
  7. ERYTHROMYCIN [Suspect]
     Indication: PNEUMONIA
     Dosage: 1500 MG/DAY
  8. ERYTHROMYCIN [Suspect]
     Dosage: 2000 MG/DAY
  9. METRONIDAZOLE [Suspect]
     Dosage: 900 MG/DAY

REACTIONS (9)
  - COORDINATION ABNORMAL [None]
  - DISORIENTATION [None]
  - DRUG INTERACTION [None]
  - DRUG LEVEL INCREASED [None]
  - DRUG TOXICITY [None]
  - FALL [None]
  - NYSTAGMUS [None]
  - PNEUMONIA [None]
  - SOMNOLENCE [None]
